FAERS Safety Report 6780742-3 (Version None)
Quarter: 2010Q2

REPORT INFORMATION
  Report Type: 
  Country: None (occurrence: None)
  Receive Date: 20100621
  Receipt Date: 20100608
  Transmission Date: 20101027
  Serious: Yes (Hospitalization)
  Sender: FDA-Public Use
  Company Number: CA-ELI_LILLY_AND_COMPANY-CA201006002532

PATIENT
  Sex: Male

DRUGS (6)
  1. GEMCITABINE HYDROCHLORIDE [Suspect]
     Indication: PANCREATIC CARCINOMA METASTATIC
     Dosage: 1000 MG/M2, UNK
     Route: 042
     Dates: start: 20100216
  2. OTHER PHARMA COMPANY INV DRUG [Suspect]
     Indication: PANCREATIC CARCINOMA METASTATIC
     Dosage: 48 MG/KG, OTHER
     Route: 042
     Dates: start: 20100216, end: 20100216
  3. OTHER PHARMA COMPANY INV DRUG [Suspect]
     Dosage: 24 MG/KG, OTHER
     Route: 042
     Dates: start: 20100312
  4. COVERSYL [Concomitant]
  5. SOTALOL [Concomitant]
  6. ASPIRIN LOW [Concomitant]

REACTIONS (1)
  - PORTAL VEIN THROMBOSIS [None]
